FAERS Safety Report 8166514-6 (Version None)
Quarter: 2012Q1

REPORT INFORMATION
  Report Type: 
  Country: None (occurrence: None)
  Receive Date: 20120227
  Receipt Date: 20111107
  Transmission Date: 20120608
  Serious: No
  Sender: FDA-Public Use
  Company Number: US-MYLANLABS-2011S1021009

PATIENT
  Sex: Male

DRUGS (2)
  1. AMNESTEEM [Suspect]
     Indication: SCAR
     Route: 048
     Dates: start: 20110501, end: 20111001
  2. AMNESTEEM [Suspect]
     Indication: ACNE
     Route: 048
     Dates: start: 20110501, end: 20111001

REACTIONS (2)
  - DEPRESSION [None]
  - AFFECTIVE DISORDER [None]
